FAERS Safety Report 20708742 (Version 1)
Quarter: 2022Q2

REPORT INFORMATION
  Report Type: Spontaneous
  Country: US (occurrence: None)
  Receive Date: 20220414
  Receipt Date: 20220414
  Transmission Date: 20220721
  Serious: No
  Sender: FDA-Public Use
  Company Number: US-ARIS GLOBAL-VER202104-001202

PATIENT
  Age: 82 Year
  Sex: Female
  Weight: 41.73 kg

DRUGS (4)
  1. NYSTATIN [Suspect]
     Active Substance: NYSTATIN
     Indication: Product used for unknown indication
     Dosage: 5 ML
     Route: 048
  2. ATORVASTATIN [Concomitant]
     Active Substance: ATORVASTATIN
     Indication: Blood cholesterol abnormal
     Dosage: UNKNOWN
  3. LIBRAX [Concomitant]
     Active Substance: CHLORDIAZEPOXIDE HYDROCHLORIDE\CLIDINIUM BROMIDE
     Indication: Abdominal discomfort
     Dosage: UNKNOWN (FOR OVER 20 YEARS)
  4. SINGULAIR [Concomitant]
     Active Substance: MONTELUKAST SODIUM
     Indication: Product used for unknown indication
     Dosage: UNKNOWN (AT NIGHT BEFORE GOING TO SLEEP)

REACTIONS (7)
  - Dysphagia [Unknown]
  - Product use complaint [Unknown]
  - Illness [Unknown]
  - Product after taste [Unknown]
  - Dry mouth [Unknown]
  - Dysphonia [Unknown]
  - Nausea [Unknown]
